FAERS Safety Report 7450069-5 (Version None)
Quarter: 2011Q2

REPORT INFORMATION
  Report Type: 
  Country: None (occurrence: None)
  Receive Date: 20110428
  Receipt Date: 20110428
  Transmission Date: 20111010
  Serious: Yes (Hospitalization)
  Sender: FDA-Public Use
  Company Number: None

PATIENT
  Age: 4 Year
  Sex: Female
  Weight: 5.93 kg

DRUGS (6)
  1. PRAVASTATIN [Suspect]
     Indication: PROGERIA
     Dosage: 5MG BID DAILY
     Dates: start: 20090331
  2. ZOLEDRONIC ACID [Suspect]
     Indication: PROGERIA
     Dosage: ONCE EVERY 6 MONTHS
  3. VITAMIN D [Concomitant]
  4. LONARARNIB [Suspect]
     Indication: PROGERIA
     Dosage: 50MG BID PO
     Route: 048
     Dates: start: 20090403
  5. ASPIRIN [Concomitant]
  6. CALCIUM 150MG WITH 100MG VITAMIN D [Concomitant]

REACTIONS (1)
  - JOINT DISLOCATION [None]
